FAERS Safety Report 23816132 (Version 1)
Quarter: 2024Q2

REPORT INFORMATION
  Report Type: Spontaneous
  Country: US (occurrence: US)
  Receive Date: 20240503
  Receipt Date: 20240503
  Transmission Date: 20240716
  Serious: No
  Sender: FDA-Public Use
  Company Number: US-Blueprint Medicines Corporation-3343

PATIENT
  Sex: Male

DRUGS (1)
  1. AYVAKIT [Suspect]
     Active Substance: AVAPRITINIB
     Indication: Systemic mastocytosis
     Route: 065
     Dates: start: 20220518

REACTIONS (5)
  - Eye infection [Unknown]
  - Conjunctivitis [Unknown]
  - Eye allergy [Unknown]
  - White blood cell count decreased [Unknown]
  - Red blood cell count decreased [Unknown]
